FAERS Safety Report 8321634-8 (Version None)
Quarter: 2012Q2

REPORT INFORMATION
  Report Type: 
  Country: None (occurrence: None)
  Receive Date: 20120430
  Receipt Date: 20120425
  Transmission Date: 20120825
  Serious: Yes (Life-Threatening)
  Sender: FDA-Public Use
  Company Number: RU-ASTRAZENECA-2012SE26794

PATIENT
  Age: 28 Year
  Sex: Female

DRUGS (3)
  1. MARCAINE [Suspect]
     Indication: SPINAL ANAESTHESIA
     Route: 037
  2. METHYLERGOBREVIN [Suspect]
     Route: 042
  3. DIAZEPAM [Suspect]
     Route: 042

REACTIONS (3)
  - CARDIAC ARREST [None]
  - OFF LABEL USE [None]
  - OVERDOSE [None]
